FAERS Safety Report 17885981 (Version 1)
Quarter: 2020Q2

REPORT INFORMATION
  Report Type: Report from Study
  Country: CA (occurrence: CA)
  Receive Date: 20200611
  Receipt Date: 20200611
  Transmission Date: 20200714
  Serious: Yes (Other)
  Sender: FDA-Public Use
  Company Number: CA-JAZZ-2020-CA-007446

PATIENT
  Sex: Male

DRUGS (1)
  1. XYREM [Suspect]
     Active Substance: SODIUM OXYBATE
     Indication: CATAPLEXY
     Dosage: UNKNOWN DOSE
     Route: 048

REACTIONS (5)
  - Apnoea [Unknown]
  - Throat irritation [Not Recovered/Not Resolved]
  - Dyspepsia [Recovered/Resolved]
  - Therapeutic response decreased [Unknown]
  - Endoscopy [Unknown]
